FAERS Safety Report 22266562 (Version 2)
Quarter: 2023Q2

REPORT INFORMATION
  Report Type: Report from Study
  Country: CO (occurrence: CO)
  Receive Date: 20230428
  Receipt Date: 20230609
  Transmission Date: 20230721
  Serious: Yes (Hospitalization)
  Sender: FDA-Public Use
  Company Number: CO-AstraZeneca-2023A097361

PATIENT
  Age: 116 Day
  Sex: Female
  Weight: 4.5 kg

DRUGS (1)
  1. SYNAGIS [Suspect]
     Active Substance: PALIVIZUMAB
     Indication: Antiviral prophylaxis
     Dosage: 15 MG/KG MONTHLY
     Route: 030
     Dates: start: 20221214

REACTIONS (1)
  - Bronchiolitis [Recovering/Resolving]

NARRATIVE: CASE EVENT DATE: 20230322
